FAERS Safety Report 5167783-7 (Version None)
Quarter: 2006Q4

REPORT INFORMATION
  Report Type: 
  Country: None (occurrence: None)
  Receive Date: 20061208
  Receipt Date: 20061010
  Transmission Date: 20070319
  Serious: No
  Sender: FDA-Public Use
  Company Number: PHBS2006JP15850

PATIENT
  Age: 66 Year
  Sex: Male

DRUGS (6)
  1. ZOMETA [Suspect]
     Indication: BONE LESION
  2. MUCOSTA [Concomitant]
     Dosage: 300 MG/D
     Route: 048
  3. ETHINYL ESTRADIOL TAB [Concomitant]
     Dosage: 3 MG/D
     Route: 048
  4. ASPIRIN [Concomitant]
     Dosage: 100 MG/D
     Route: 048
  5. FLOMOX [Concomitant]
     Dosage: 300 MG/D
     Route: 048
  6. LOXONIN [Concomitant]
     Dosage: 60 MG/D
     Route: 048

REACTIONS (1)
  - TOOTHACHE [None]
